FAERS Safety Report 12080326 (Version 1)
Quarter: 2016Q1

REPORT INFORMATION
  Report Type: Spontaneous
  Country: US (occurrence: None)
  Receive Date: 20160212
  Receipt Date: 20160212
  Transmission Date: 20160526
  Serious: No
  Sender: FDA-Public Use
  Company Number: None

PATIENT
  Age: 57 Year
  Sex: Female

DRUGS (1)
  1. CAPECITABINE 500MG TEVA [Suspect]
     Active Substance: CAPECITABINE
     Indication: CHOLANGIOCARCINOMA
     Route: 048
     Dates: start: 20160125

REACTIONS (2)
  - Abdominal pain [None]
  - Musculoskeletal chest pain [None]

NARRATIVE: CASE EVENT DATE: 201602
